FAERS Safety Report 5515150-6 (Version None)
Quarter: 2007Q4

REPORT INFORMATION
  Report Type: 
  Country: None (occurrence: None)
  Receive Date: 20071113
  Receipt Date: 20070122
  Transmission Date: 20080405
  Serious: No
  Sender: FDA-Public Use
  Company Number: A0636396A

PATIENT
  Age: 65 Year
  Sex: Female

DRUGS (2)
  1. COREG [Suspect]
     Route: 065
  2. LISINOPRIL [Suspect]
     Route: 065

REACTIONS (1)
  - LIBIDO DECREASED [None]
